FAERS Safety Report 20597087 (Version 1)
Quarter: 2022Q1

REPORT INFORMATION
  Report Type: Spontaneous
  Country: US (occurrence: None)
  Receive Date: 20220315
  Receipt Date: 20220315
  Transmission Date: 20220423
  Serious: Yes (Other)
  Sender: FDA-Public Use
  Company Number: None

PATIENT
  Sex: Female

DRUGS (5)
  1. HUMIRA [Suspect]
     Active Substance: ADALIMUMAB
     Indication: Crohn^s disease
     Dosage: DOSE OR AMOUNT: 40MG/0.4ML
     Route: 058
     Dates: start: 20210525
  2. HUMIRA [Suspect]
     Active Substance: ADALIMUMAB
     Indication: Kaposi^s sarcoma
  3. MERCAPTOPUR [Concomitant]
  4. OSCAL [Concomitant]
     Active Substance: CALCIUM CARBONATE
  5. PROPRANOLOL [Concomitant]

REACTIONS (2)
  - Thyroid mass [None]
  - Thyroid cancer [None]
